FAERS Safety Report 12727911 (Version 1)
Quarter: 2016Q3

REPORT INFORMATION
  Report Type: Spontaneous
  Country: US (occurrence: US)
  Receive Date: 20160909
  Receipt Date: 20160909
  Transmission Date: 20161109
  Serious: No
  Sender: FDA-Public Use
  Company Number: US-BEH-2016073297

PATIENT
  Sex: Female
  Weight: 73.16 kg

DRUGS (19)
  1. MIDODRINE [Concomitant]
     Active Substance: MIDODRINE
  2. ATORVASTATIN [Concomitant]
     Active Substance: ATORVASTATIN
  3. GRAPE SEED [Concomitant]
  4. ZEMAIRA [Suspect]
     Active Substance: .ALPHA.1-PROTEINASE INHIBITOR HUMAN
     Indication: ALPHA-1 ANTI-TRYPSIN DEFICIENCY
     Dosage: 60 MG/KG, QW
     Route: 042
  5. EPIPEN [Concomitant]
     Active Substance: EPINEPHRINE
  6. FISH OIL [Concomitant]
     Active Substance: FISH OIL
  7. DIPHENHYDRAMINE. [Concomitant]
     Active Substance: DIPHENHYDRAMINE
  8. KLONOPIN [Concomitant]
     Active Substance: CLONAZEPAM
  9. ASPIRIN. [Concomitant]
     Active Substance: ASPIRIN
  10. BENADRYL [Concomitant]
     Active Substance: DIPHENHYDRAMINE HYDROCHLORIDE
  11. TURMERIC                           /01079602/ [Concomitant]
     Active Substance: TURMERIC
  12. SODIUM CHLORIDE. [Concomitant]
     Active Substance: SODIUM CHLORIDE
     Indication: PREMEDICATION
  13. ONE A DAY                          /02262701/ [Concomitant]
     Active Substance: VITAMINS
  14. COENZYME Q10 [Concomitant]
     Active Substance: UBIDECARENONE
  15. GINGER                             /01646602/ [Concomitant]
  16. CINNAMON                           /01647501/ [Concomitant]
     Active Substance: CINNAMON
  17. LATUDA [Concomitant]
     Active Substance: LURASIDONE HYDROCHLORIDE
  18. LIDOCAINE. [Concomitant]
     Active Substance: LIDOCAINE
  19. TYLENOL [Concomitant]
     Active Substance: ACETAMINOPHEN

REACTIONS (2)
  - Blood pressure decreased [Unknown]
  - Dizziness [Unknown]
